FAERS Safety Report 9246631 (Version 1)
Quarter: 2013Q2

REPORT INFORMATION
  Report Type: Report from Study
  Country: US (occurrence: US)
  Receive Date: 20130422
  Receipt Date: 20130422
  Transmission Date: 20140414
  Serious: No
  Sender: FDA-Public Use
  Company Number: US-ABBOTT-12P-163-0939025-00

PATIENT
  Age: 6 Year
  Sex: Male
  Weight: 23.15 kg

DRUGS (4)
  1. LUPRON DEPOT-PED 7.5 MG [Suspect]
     Indication: PRECOCIOUS PUBERTY
     Dates: start: 20101102
  2. LEVETIRACETAM [Concomitant]
     Indication: CONVULSION
  3. ZYRTEC [Concomitant]
     Indication: HYPERSENSITIVITY
  4. ELIDEL CREAM [Concomitant]
     Indication: ECZEMA

REACTIONS (3)
  - Hair growth abnormal [Not Recovered/Not Resolved]
  - Acne [Not Recovered/Not Resolved]
  - Ill-defined disorder [Not Recovered/Not Resolved]
